FAERS Safety Report 16321208 (Version 2)
Quarter: 2019Q2

REPORT INFORMATION
  Report Type: Spontaneous
  Country: US (occurrence: US)
  Receive Date: 20190516
  Receipt Date: 20190531
  Transmission Date: 20190711
  Serious: Yes (Life-Threatening, Other)
  Sender: FDA-Public Use
  Company Number: US-APOTEX-2019AP014653

PATIENT
  Age: 21 Year
  Sex: Female

DRUGS (11)
  1. ONDANSETRON [Concomitant]
     Active Substance: ONDANSETRON
     Indication: PRODUCT USED FOR UNKNOWN INDICATION
     Dosage: UNK
     Route: 065
  2. NAPROXEN. [Concomitant]
     Active Substance: NAPROXEN
     Indication: PRODUCT USED FOR UNKNOWN INDICATION
     Dosage: UNK
     Route: 065
  3. FLUOXETINE [Concomitant]
     Active Substance: FLUOXETINE HYDROCHLORIDE
     Indication: GENERALISED ANXIETY DISORDER
  4. PAROXETINE. [Suspect]
     Active Substance: PAROXETINE
     Dosage: 20 MG, UNKNOWN
     Route: 065
  5. PAROXETINE. [Suspect]
     Active Substance: PAROXETINE
     Dosage: 30 MG, QD
     Route: 065
  6. ETHINYLESTRADIOL W/LEVONORGESTREL [Concomitant]
     Active Substance: ETHINYL ESTRADIOL\LEVONORGESTREL
     Indication: PRODUCT USED FOR UNKNOWN INDICATION
     Dosage: UNK
     Route: 048
  7. PAROXETINE. [Suspect]
     Active Substance: PAROXETINE
     Indication: MAJOR DEPRESSION
     Dosage: 10 MG, QD
     Route: 065
  8. AMOXICILLIN TRIHYDRATE [Suspect]
     Active Substance: AMOXICILLIN
     Indication: PRODUCT USED FOR UNKNOWN INDICATION
     Dosage: UNK
     Route: 065
  9. METOCLOPRAMIDE. [Suspect]
     Active Substance: METOCLOPRAMIDE
     Indication: PRODUCT USED FOR UNKNOWN INDICATION
     Dosage: UNK
     Route: 065
  10. FLUOXETINE [Concomitant]
     Active Substance: FLUOXETINE HYDROCHLORIDE
     Indication: MAJOR DEPRESSION
     Dosage: 20 MG, DAILY
     Route: 065
  11. HYDROXYZINE [Concomitant]
     Active Substance: HYDROXYZINE HYDROCHLORIDE
     Indication: ANXIETY
     Dosage: 50 MG, BID AS NEEDED
     Route: 065

REACTIONS (33)
  - Fatigue [Recovered/Resolved]
  - Hot flush [Recovered/Resolved]
  - Panic attack [Unknown]
  - Heart rate increased [Recovered/Resolved]
  - Arthralgia [Recovered/Resolved]
  - Resting tremor [Recovered/Resolved]
  - Crepitations [Recovered/Resolved]
  - Paraesthesia [Recovered/Resolved]
  - Epistaxis [Recovered/Resolved]
  - Withdrawal syndrome [Recovered/Resolved]
  - Autonomic nervous system imbalance [Recovered/Resolved]
  - Antinuclear antibody positive [Recovered/Resolved]
  - Pain [Recovered/Resolved]
  - Tachyphrenia [Recovered/Resolved]
  - Asthenia [Recovered/Resolved]
  - Hallucination [Recovered/Resolved]
  - Insomnia [Recovered/Resolved]
  - Arthropathy [Recovered/Resolved]
  - C-reactive protein increased [Recovered/Resolved]
  - Myalgia [Recovered/Resolved]
  - Rash [Unknown]
  - Nausea [Recovered/Resolved]
  - Serotonin syndrome [Recovered/Resolved]
  - Drug intolerance [Unknown]
  - Neuromyopathy [Recovered/Resolved]
  - Muscle twitching [Recovered/Resolved]
  - Headache [Recovered/Resolved]
  - Cognitive disorder [Recovered/Resolved]
  - Panic reaction [Recovered/Resolved]
  - Alcohol intolerance [Unknown]
  - Confusional state [Recovered/Resolved]
  - Hyperreflexia [Recovered/Resolved]
  - Tremor [Recovered/Resolved]
